FAERS Safety Report 17087309 (Version 2)
Quarter: 2020Q1

REPORT INFORMATION
  Report Type: Report from Study
  Country: None (occurrence: US)
  Receive Date: 20191128
  Receipt Date: 20200211
  Transmission Date: 20200409
  Serious: Yes (Hospitalization)
  Sender: FDA-Public Use
  Company Number: US-INSMED, INC.-US-INS-19-03768

PATIENT
  Age: 85 Year
  Sex: Female

DRUGS (2)
  1. ARIKAYCE [Suspect]
     Active Substance: AMIKACIN
     Indication: PRODUCT USED FOR UNKNOWN INDICATION
     Route: 055
     Dates: start: 20181115
  2. LAMIRA NEBULIZER SYSTEM [Suspect]
     Active Substance: DEVICE

REACTIONS (6)
  - Hospitalisation [Unknown]
  - Drug dose omission by device [Unknown]
  - Sleep disorder [Unknown]
  - Device issue [Unknown]
  - Device physical property issue [Unknown]
  - Secretion discharge [Unknown]

NARRATIVE: CASE EVENT DATE: 2019
